FAERS Safety Report 7238870-4 (Version None)
Quarter: 2011Q1

REPORT INFORMATION
  Report Type: 
  Country: None (occurrence: None)
  Receive Date: 20110121
  Receipt Date: 20110113
  Transmission Date: 20110831
  Serious: Yes (Other)
  Sender: FDA-Public Use
  Company Number: PHHY2010JP78791

PATIENT
  Sex: Female

DRUGS (2)
  1. ZOLEDRONATE [Suspect]
     Indication: METASTASES TO BONE
     Dosage: 4 MG, QMO
     Route: 042
     Dates: start: 20071101, end: 20090901
  2. ZOLEDRONATE [Suspect]
     Dosage: 4 MG, QMO
     Route: 042

REACTIONS (8)
  - OSTEOLYSIS [None]
  - ORAL CAVITY FISTULA [None]
  - BONE DISORDER [None]
  - OSTEONECROSIS OF JAW [None]
  - TENDERNESS [None]
  - METASTATIC PAIN [None]
  - PURULENT DISCHARGE [None]
  - NEOPLASM MALIGNANT [None]
